FAERS Safety Report 7804657-4 (Version None)
Quarter: 2011Q4

REPORT INFORMATION
  Report Type: 
  Country: None (occurrence: None)
  Receive Date: 20111010
  Receipt Date: 20110930
  Transmission Date: 20120403
  Serious: Yes (Hospitalization)
  Sender: FDA-Public Use
  Company Number: US-ELI_LILLY_AND_COMPANY-US201103003548

PATIENT
  Sex: Female

DRUGS (10)
  1. ATENOLOL [Concomitant]
  2. FISH OIL [Concomitant]
  3. EFFIENT [Suspect]
     Indication: STENT PLACEMENT
     Dosage: 5 MG, DAILY (1/D)
     Dates: start: 20110103
  4. PRILOSEC [Concomitant]
  5. POTASSIUM [Concomitant]
  6. ASPIRIN [Concomitant]
  7. LEVOTHYROXINE SODIUM [Concomitant]
  8. MULTI-VITAMIN [Concomitant]
  9. FUROSEMIDE [Concomitant]
     Indication: FLUID RETENTION
  10. CALCIUM CARBONATE + VITAMIN D [Concomitant]

REACTIONS (14)
  - HOSPITALISATION [None]
  - FEELING ABNORMAL [None]
  - WRONG TECHNIQUE IN DRUG USAGE PROCESS [None]
  - GAIT DISTURBANCE [None]
  - DYSPNOEA [None]
  - DIZZINESS [None]
  - NAUSEA [None]
  - MYALGIA [None]
  - HEART VALVE INCOMPETENCE [None]
  - HEADACHE [None]
  - FATIGUE [None]
  - BREAST DISCOMFORT [None]
  - CHEST DISCOMFORT [None]
  - PETECHIAE [None]
